FAERS Safety Report 12456219 (Version 1)
Quarter: 2016Q2

REPORT INFORMATION
  Report Type: Report from Study
  Country: PH (occurrence: PH)
  Receive Date: 20160610
  Receipt Date: 20160610
  Transmission Date: 20160815
  Serious: Yes (Other)
  Sender: FDA-Public Use
  Company Number: PH-009507513-1606PHL001803

PATIENT
  Age: 58 Year
  Sex: Female

DRUGS (2)
  1. JANUMET [Suspect]
     Active Substance: METFORMIN HYDROCHLORIDE\SITAGLIPTIN PHOSPHATE
     Indication: DIABETES MELLITUS
     Dosage: ONE TABLET, ONCE A DAY
     Route: 048
     Dates: start: 2014
  2. NORIZEC [Concomitant]

REACTIONS (3)
  - Urinary tract infection [Unknown]
  - Inappropriate schedule of drug administration [Unknown]
  - Abasia [Unknown]

NARRATIVE: CASE EVENT DATE: 2014
